FAERS Safety Report 7769482-1 (Version None)
Quarter: 2011Q3

REPORT INFORMATION
  Report Type: 
  Country: None (occurrence: None)
  Receive Date: 20110922
  Receipt Date: 20110121
  Transmission Date: 20111222
  Serious: No
  Sender: FDA-Public Use
  Company Number: US-ASTRAZENECA-2010SE24615

PATIENT
  Age: 28 Year
  Sex: Female
  Weight: 49.9 kg

DRUGS (2)
  1. LAMOTRIGINE [Concomitant]
     Indication: BIPOLAR DISORDER
  2. SEROQUEL [Suspect]
     Indication: BIPOLAR DISORDER
     Route: 048

REACTIONS (5)
  - ABDOMINAL PAIN UPPER [None]
  - DRUG DOSE OMISSION [None]
  - INSOMNIA [None]
  - PAIN [None]
  - DRUG WITHDRAWAL SYNDROME [None]
